FAERS Safety Report 22224535 (Version 1)
Quarter: 2023Q2

REPORT INFORMATION
  Report Type: Spontaneous
  Country: CO (occurrence: CO)
  Receive Date: 20230418
  Receipt Date: 20230418
  Transmission Date: 20230722
  Serious: Yes (Death, Hospitalization)
  Sender: FDA-Public Use
  Company Number: CO-ORG100014127-2023000384

PATIENT
  Age: 33 Year
  Sex: Male
  Weight: 62 kg

DRUGS (3)
  1. LYSODREN [Suspect]
     Active Substance: MITOTANE
     Indication: Adrenocortical carcinoma
     Route: 048
     Dates: start: 20220506
  2. HYDROCORTISONE [Concomitant]
     Active Substance: HYDROCORTISONE
     Indication: Product used for unknown indication
     Dates: start: 202112
  3. ATORVASTATIN [Concomitant]
     Active Substance: ATORVASTATIN
     Indication: Product used for unknown indication
     Dates: start: 202202

REACTIONS (3)
  - Death [Fatal]
  - Dehydration [Unknown]
  - Malnutrition [Unknown]

NARRATIVE: CASE EVENT DATE: 20230101
